FAERS Safety Report 16086419 (Version 4)
Quarter: 2020Q2

REPORT INFORMATION
  Report Type: Spontaneous
  Country: CN (occurrence: CN)
  Receive Date: 20190318
  Receipt Date: 20200506
  Transmission Date: 20200713
  Serious: Yes (Hospitalization)
  Sender: FDA-Public Use
  Company Number: CN-CELGENEUS-CHN-20190303324

PATIENT
  Age: 72 Year
  Sex: Female
  Weight: 62 kg

DRUGS (21)
  1. HIRUDOID [Concomitant]
     Active Substance: GLYCOSAMINOGLYCANS
     Indication: PROPHYLAXIS
  2. AZACITIDINE. [Suspect]
     Active Substance: AZACITIDINE
     Dosage: 75 MILLIGRAM/SQ. METER
     Route: 058
     Dates: start: 20190305
  3. HIRUDOID [Concomitant]
     Active Substance: GLYCOSAMINOGLYCANS
     Indication: INJECTION SITE SWELLING
     Route: 003
     Dates: start: 20180917
  4. MUPIROCIN. [Concomitant]
     Active Substance: MUPIROCIN
     Indication: INJECTION SITE SWELLING
     Route: 003
     Dates: start: 20180919
  5. MUPIROCIN. [Concomitant]
     Active Substance: MUPIROCIN
     Indication: INJECTION SITE PAIN
  6. POVIDONE-IODINE. [Concomitant]
     Active Substance: POVIDONE-IODINE
     Indication: INFECTION PROPHYLAXIS
     Route: 061
     Dates: start: 20180917
  7. VENETOCLAX. [Concomitant]
     Active Substance: VENETOCLAX
     Dosage: 200 MILLIGRAM
     Route: 048
     Dates: start: 20180919, end: 20180919
  8. VENETOCLAX. [Concomitant]
     Active Substance: VENETOCLAX
     Dosage: 400 MILLIGRAM
     Route: 048
     Dates: start: 20180920
  9. HIRUDOID [Concomitant]
     Active Substance: GLYCOSAMINOGLYCANS
     Indication: INJECTION SITE PAIN
  10. IODINE GLYCEROL [Concomitant]
     Indication: INFECTION PROPHYLAXIS
     Route: 002
     Dates: start: 20180917
  11. AZACITIDINE. [Suspect]
     Active Substance: AZACITIDINE
     Indication: ACUTE MYELOID LEUKAEMIA
     Dosage: 75 MILLIGRAM/SQ. METER
     Route: 058
     Dates: start: 20180917, end: 20190201
  12. ISONIAZID. [Concomitant]
     Active Substance: ISONIAZID
     Indication: TUBERCULOSIS
     Dosage: 300 MILLIGRAM
     Route: 041
     Dates: start: 20180921, end: 20181015
  13. NORMAL SALINE [Concomitant]
     Active Substance: SODIUM CHLORIDE
     Indication: PROPHYLAXIS
     Dosage: 8000 MILLILITER
     Route: 041
     Dates: start: 20180916, end: 20180923
  14. COMPOUND SODIUM BICARBONATE [Concomitant]
     Indication: INFECTION PROPHYLAXIS
     Route: 065
     Dates: start: 20180917
  15. BUTENAFINE [Concomitant]
     Active Substance: BUTENAFINE HYDROCHLORIDE
     Indication: TINEA INFECTION
     Route: 062
     Dates: start: 20181113
  16. SCUTELLARIA BAICALENSIS [Concomitant]
     Indication: INFECTION PROPHYLAXIS
     Route: 054
     Dates: start: 20180917
  17. FEBUXOSTAT. [Concomitant]
     Active Substance: FEBUXOSTAT
     Indication: PROPHYLAXIS
     Dosage: 40 MILLIGRAM
     Route: 048
     Dates: start: 20180916, end: 20180923
  18. SODIUM BICARBONATE. [Concomitant]
     Active Substance: SODIUM BICARBONATE
     Indication: PROPHYLAXIS
     Dosage: 120 MILLILITER
     Route: 041
     Dates: start: 20180916, end: 20180923
  19. VENETOCLAX. [Concomitant]
     Active Substance: VENETOCLAX
     Indication: ACUTE MYELOID LEUKAEMIA
     Dosage: 100 MILLIGRAM
     Route: 048
     Dates: start: 20180917, end: 20180918
  20. MUPIROCIN. [Concomitant]
     Active Substance: MUPIROCIN
     Indication: PROPHYLAXIS
  21. SCOPOLAMINE BUTYLBROMIDE [Concomitant]
     Active Substance: SCOPOLAMINE
     Indication: DIZZINESS
     Route: 041
     Dates: start: 201902, end: 201902

REACTIONS (1)
  - Vertigo [Recovered/Resolved]

NARRATIVE: CASE EVENT DATE: 20190224
